FAERS Safety Report 8947612 (Version 1)
Quarter: 2012Q4

REPORT INFORMATION
  Report Type: 
  Country: FR (occurrence: FR)
  Receive Date: 20121205
  Receipt Date: 20121205
  Transmission Date: 20130627
  Serious: Yes (Hospitalization)
  Sender: FDA-Public Use
  Company Number: FR-ROCHE-1160104

PATIENT
  Age: 40 Year
  Sex: Male

DRUGS (5)
  1. MABTHERA [Suspect]
     Indication: RHEUMATOID ARTHRITIS
     Route: 042
  2. MABTHERA [Suspect]
     Route: 042
     Dates: start: 20120718, end: 20120918
  3. METHYLPREDNISOLONE [Suspect]
     Indication: PREMEDICATION
     Route: 042
  4. POLARAMINE [Suspect]
     Indication: PREMEDICATION
     Dosage: 1 Ampoule
     Route: 042
  5. PARACETAMOL [Suspect]
     Indication: PREMEDICATION
     Route: 042

REACTIONS (1)
  - Acute coronary syndrome [Recovered/Resolved]
